FAERS Safety Report 24183881 (Version 1)
Quarter: 2024Q3

REPORT INFORMATION
  Report Type: Spontaneous
  Country: US (occurrence: US)
  Receive Date: 20240807
  Receipt Date: 20240807
  Transmission Date: 20241016
  Serious: No
  Sender: OTSUKA
  Company Number: US-OTSUKA-2024_020535

PATIENT

DRUGS (2)
  1. ABILIFY MAINTENA [Suspect]
     Active Substance: ARIPIPRAZOLE
     Indication: Product used for unknown indication
     Dosage: UNK
     Route: 065
  2. ABILIFY ASIMTUFII [Suspect]
     Active Substance: ARIPIPRAZOLE
     Indication: Product used for unknown indication
     Dosage: UNK
     Route: 065

REACTIONS (9)
  - Social avoidant behaviour [Unknown]
  - Malaise [Unknown]
  - Mental disorder [Unknown]
  - Depressed mood [Unknown]
  - Temperature regulation disorder [Unknown]
  - Nausea [Unknown]
  - Somnolence [Unknown]
  - Product substitution issue [Unknown]
  - Therapeutic response decreased [Unknown]
